FAERS Safety Report 15330725 (Version 1)
Quarter: 2018Q3

REPORT INFORMATION
  Report Type: Spontaneous
  Country: US (occurrence: US)
  Receive Date: 20180824
  Receipt Date: 20180824
  Transmission Date: 20181010
  Serious: No
  Sender: FDA-Public Use
  Company Number: None

PATIENT
  Sex: Female
  Weight: 83.91 kg

DRUGS (3)
  1. METHOTREXATE UNKNOWN GENERIC [Suspect]
     Active Substance: METHOTREXATE
     Indication: OSTEOARTHRITIS
  2. METHOTREXATE UNKNOWN GENERIC [Suspect]
     Active Substance: METHOTREXATE
     Indication: DERMATITIS
  3. METHOTREXATE UNKNOWN GENERIC [Suspect]
     Active Substance: METHOTREXATE
     Indication: RHEUMATOID ARTHRITIS

REACTIONS (5)
  - Dizziness [None]
  - Dysstasia [None]
  - Thyroid cancer [None]
  - Malaise [None]
  - Brain neoplasm [None]
